FAERS Safety Report 6116540-3 (Version None)
Quarter: 2009Q1

REPORT INFORMATION
  Report Type: 
  Country: None (occurrence: None)
  Receive Date: 20090314
  Receipt Date: 20081217
  Transmission Date: 20090719
  Serious: No
  Sender: FDA-Public Use
  Company Number: US-ABBOTT-08P-163-0493540-00

PATIENT
  Sex: Female
  Weight: 58.112 kg

DRUGS (6)
  1. HUMIRA [Suspect]
     Indication: CROHN'S DISEASE
     Route: 058
     Dates: start: 20081204, end: 20081204
  2. HUMIRA [Suspect]
     Route: 058
     Dates: start: 20081120, end: 20081120
  3. HUMIRA [Suspect]
     Route: 058
     Dates: start: 20081127, end: 20081127
  4. HUMIRA [Suspect]
     Route: 058
  5. IMURAN [Concomitant]
     Indication: CROHN'S DISEASE
  6. PREDNISONE [Concomitant]
     Indication: CROHN'S DISEASE

REACTIONS (1)
  - OVERDOSE [None]
